FAERS Safety Report 4808422-1 (Version None)
Quarter: 2005Q4

REPORT INFORMATION
  Report Type: 
  Country: None (occurrence: None)
  Receive Date: 20051020
  Receipt Date: 20051005
  Transmission Date: 20060501
  Serious: Yes (Disabling)
  Sender: FDA-Public Use
  Company Number: TCI2005A04213

PATIENT
  Age: 73 Year
  Sex: Male

DRUGS (4)
  1. ACTOS [Suspect]
     Indication: BLOOD GLUCOSE ABNORMAL
     Dosage: SEE IMAGE
     Route: 048
     Dates: start: 20050901, end: 20050930
  2. AMARYL [Concomitant]
  3. DIOVAN [Concomitant]
  4. NORVASC [Concomitant]

REACTIONS (3)
  - ABDOMINAL DISTENSION [None]
  - DYSPNOEA [None]
  - OEDEMA [None]
